FAERS Safety Report 17869729 (Version 1)
Quarter: 2020Q2

REPORT INFORMATION
  Report Type: Spontaneous
  Country: IT (occurrence: IT)
  Receive Date: 20200608
  Receipt Date: 20200608
  Transmission Date: 20200714
  Serious: Yes (Hospitalization)
  Sender: FDA-Public Use
  Company Number: IT-ROCHE-2616518

PATIENT
  Age: 38 Year
  Sex: Female

DRUGS (2)
  1. NICOZID [Concomitant]
     Active Substance: ISONIAZID
     Route: 048
  2. OCREVUS [Suspect]
     Active Substance: OCRELIZUMAB
     Indication: MULTIPLE SCLEROSIS
     Route: 042

REACTIONS (2)
  - Bronchiectasis [Recovered/Resolved]
  - Bronchiolitis [Recovered/Resolved]

NARRATIVE: CASE EVENT DATE: 20200122
